FAERS Safety Report 10842724 (Version 3)
Quarter: 2016Q1

REPORT INFORMATION
  Report Type: Spontaneous
  Country: FR (occurrence: FR)
  Receive Date: 20150220
  Receipt Date: 20160229
  Transmission Date: 20160525
  Serious: Yes (Other)
  Sender: FDA-Public Use
  Company Number: FR-SA-2015SA020421

PATIENT
  Age: 74 Year
  Sex: Male

DRUGS (12)
  1. PRAVASTATIN SODIUM. [Suspect]
     Active Substance: PRAVASTATIN SODIUM
     Route: 048
     Dates: start: 20150120, end: 20150206
  2. ASPEGIC [Concomitant]
     Active Substance: ASPIRIN DL-LYSINE
     Indication: PRODUCT USED FOR UNKNOWN INDICATION
     Route: 048
     Dates: start: 20150120
  3. PLAVIX [Suspect]
     Active Substance: CLOPIDOGREL BISULFATE
     Route: 048
     Dates: start: 20150121, end: 20150206
  4. RISORDAN [Suspect]
     Active Substance: ISOSORBIDE DINITRATE
     Route: 065
     Dates: start: 20150203, end: 20150203
  5. BETADINE [Suspect]
     Active Substance: POVIDONE-IODINE
     Route: 003
     Dates: start: 20150203, end: 20150203
  6. TILDIEM [Suspect]
     Active Substance: DILTIAZEM HYDROCHLORIDE
     Route: 042
     Dates: start: 20150203, end: 20150203
  7. XENETIX [Suspect]
     Active Substance: IOBITRIDOL
     Route: 042
     Dates: start: 20150203, end: 20150203
  8. EXFORGE [Concomitant]
     Active Substance: AMLODIPINE BESYLATE\VALSARTAN
  9. ATENOLOL. [Concomitant]
     Active Substance: ATENOLOL
     Indication: PRODUCT USED FOR UNKNOWN INDICATION
     Route: 048
     Dates: start: 20150120
  10. PLAVIX [Suspect]
     Active Substance: CLOPIDOGREL BISULFATE
     Route: 048
     Dates: start: 20150120, end: 20150120
  11. ZYLORIC [Suspect]
     Active Substance: ALLOPURINOL
     Indication: GOUT
     Route: 048
     Dates: end: 20150205
  12. HEPARIN SODIUM. [Suspect]
     Active Substance: HEPARIN SODIUM
     Route: 042
     Dates: start: 20150203, end: 20150203

REACTIONS (6)
  - Drug reaction with eosinophilia and systemic symptoms [Recovered/Resolved]
  - Dermatitis exfoliative [Recovered/Resolved]
  - Renal failure [Recovered/Resolved]
  - Pyrexia [Recovered/Resolved]
  - Pruritus [Recovered/Resolved]
  - Eosinophilia [Recovered/Resolved]

NARRATIVE: CASE EVENT DATE: 20150204
